FAERS Safety Report 7288039-2 (Version None)
Quarter: 2011Q1

REPORT INFORMATION
  Report Type: 
  Country: None (occurrence: None)
  Receive Date: 20110211
  Receipt Date: 20110202
  Transmission Date: 20110831
  Serious: Yes (Hospitalization, Disabling)
  Sender: FDA-Public Use
  Company Number: PHHY2011US08893

PATIENT
  Sex: Female

DRUGS (2)
  1. FOSAMAX [Concomitant]
  2. RECLAST [Suspect]
     Dosage: 5 MG, UNK
     Route: 042

REACTIONS (1)
  - FEMUR FRACTURE [None]
